FAERS Safety Report 20600026 (Version 1)
Quarter: 2022Q1

REPORT INFORMATION
  Report Type: Spontaneous
  Country: US (occurrence: US)
  Receive Date: 20220316
  Receipt Date: 20220316
  Transmission Date: 20220423
  Serious: No
  Sender: FDA-Public Use
  Company Number: US-PBT-004405

PATIENT

DRUGS (1)
  1. RIZATRIPTAN [Suspect]
     Active Substance: RIZATRIPTAN
     Indication: Headache
     Route: 065

REACTIONS (4)
  - Abdominal discomfort [Unknown]
  - Product taste abnormal [Unknown]
  - Taste disorder [Unknown]
  - Drug ineffective [Unknown]
